FAERS Safety Report 12040279 (Version 34)
Quarter: 2019Q3

REPORT INFORMATION
  Report Type: Spontaneous
  Country: BR (occurrence: BR)
  Receive Date: 20160208
  Receipt Date: 20190909
  Transmission Date: 20191004
  Serious: Yes (Hospitalization, Disabling, Other)
  Sender: FDA-Public Use
  Company Number: BR-GLAXOSMITHKLINE-BR2015GSK160212

PATIENT
  Sex: Female
  Weight: 64 kg

DRUGS (14)
  1. BENLYSTA [Suspect]
     Active Substance: BELIMUMAB
     Dosage: 120 MG, Z
     Route: 042
     Dates: start: 20170811
  2. BENLYSTA [Suspect]
     Active Substance: BELIMUMAB
     Dosage: 400 MG, Z
     Route: 042
     Dates: start: 20170906
  3. BENLYSTA [Suspect]
     Active Substance: BELIMUMAB
     Dosage: 7 VIALS OF BENLYSTA 120MG
     Route: 042
     Dates: start: 20171006
  4. CHLOROQUINE DIPHOSPHATE [Concomitant]
     Active Substance: CHLOROQUINE PHOSPHATE
     Indication: SYSTEMIC LUPUS ERYTHEMATOSUS
     Dosage: UNK
  5. CLOPIDOGREL [Concomitant]
     Active Substance: CLOPIDOGREL BISULFATE
     Indication: PRODUCT USED FOR UNKNOWN INDICATION
     Dosage: UNK
  6. VITAMIN D [Concomitant]
     Active Substance: VITAMIN D NOS
     Indication: PRODUCT USED FOR UNKNOWN INDICATION
     Dosage: UNK
  7. PREDSIM [Concomitant]
     Active Substance: PREDNISOLONE
     Indication: PRODUCT USED FOR UNKNOWN INDICATION
     Dosage: UNK
  8. CARVEDILOL. [Concomitant]
     Active Substance: CARVEDILOL
     Indication: PRODUCT USED FOR UNKNOWN INDICATION
     Dosage: UNK
  9. TECNOMET [Concomitant]
     Active Substance: METHOTREXATE
     Indication: SYSTEMIC LUPUS ERYTHEMATOSUS
     Dosage: UNK
  10. SIMVASTATINE [Concomitant]
     Active Substance: SIMVASTATIN
     Indication: PRODUCT USED FOR UNKNOWN INDICATION
     Dosage: UNK
  11. BENLYSTA [Suspect]
     Active Substance: BELIMUMAB
     Indication: SYSTEMIC LUPUS ERYTHEMATOSUS
     Dosage: UNK
     Route: 042
     Dates: start: 20150401
  12. DAPSONE. [Concomitant]
     Active Substance: DAPSONE
     Indication: PRODUCT USED FOR UNKNOWN INDICATION
     Dosage: UNK
  13. REUQUINOL [Concomitant]
     Active Substance: HYDROXYCHLOROQUINE SULFATE
     Indication: PRODUCT USED FOR UNKNOWN INDICATION
     Dosage: UNK
  14. VASTAREL [Concomitant]
     Active Substance: TRIMETAZIDINE DIHYDROCHLORIDE
     Indication: PRODUCT USED FOR UNKNOWN INDICATION
     Dosage: UNK

REACTIONS (27)
  - Myocardial infarction [Unknown]
  - Limb discomfort [Recovered/Resolved with Sequelae]
  - Pain in extremity [Unknown]
  - Laboratory test abnormal [Unknown]
  - Movement disorder [Unknown]
  - Adverse event [Unknown]
  - Weight decreased [Unknown]
  - Vitamin D deficiency [Unknown]
  - Blood pressure decreased [Unknown]
  - Immunodeficiency [Unknown]
  - Overdose [Unknown]
  - Skin lesion [Unknown]
  - Product dose omission [Unknown]
  - Systemic lupus erythematosus [Unknown]
  - Product availability issue [Unknown]
  - Blister [Unknown]
  - Pain [Unknown]
  - Arthralgia [Unknown]
  - Urinary tract infection [Unknown]
  - Loss of personal independence in daily activities [Unknown]
  - Malaise [Unknown]
  - Skin disorder [Unknown]
  - Muscle rigidity [Unknown]
  - Nodule [Unknown]
  - Drug ineffective [Unknown]
  - Inappropriate schedule of product administration [Unknown]
  - Circumstance or information capable of leading to medication error [Unknown]
